FAERS Safety Report 9296658 (Version 3)
Quarter: 2013Q4

REPORT INFORMATION
  Report Type: Spontaneous
  Country: US (occurrence: None)
  Receive Date: 20130515
  Receipt Date: 20131115
  Transmission Date: 20140711
  Serious: Yes (Hospitalization)
  Sender: FDA-Public Use
  Company Number: 2013US001548

PATIENT
  Age: 59 Year
  Sex: Female
  Weight: 74 kg

DRUGS (29)
  1. PONATINIB [Suspect]
     Indication: CHRONIC MYELOID LEUKAEMIA
     Route: 048
     Dates: start: 20130426, end: 20130427
  2. AMLODIPINE (AMLODIPINE [Concomitant]
  3. DIOVAN (VALSARTAN) [Concomitant]
  4. LEVOTHYROXINE (LEVOTHYROXINE) [Concomitant]
  5. TOPROL (METOPROLOL SUCCINATE) [Concomitant]
  6. CRESTOR (ROSUVASTATIN CALCIUM) [Concomitant]
  7. DURAGESIC (FENTANYL) PATCH [Concomitant]
  8. NASONEX (MOMETASONE FUROATE) [Concomitant]
  9. XANAX (ALPRAZOLAM) [Concomitant]
  10. BENADRYL (DIPHENHYDRAMINE HYDROCHLORIDE) [Concomitant]
  11. DEXILANT (DEXLANSOPRAZOLE) [Concomitant]
  12. QUETIAPINE (QUETIAPINE) [Concomitant]
  13. REMERON (MIRTAZAPINE) [Concomitant]
  14. PRISTIQ (DESVENLAFAXINE SUCCINATE) [Concomitant]
  15. ESTRACE (ESTRADIOL) [Concomitant]
  16. AMITRIPTYLINE (AMITRIPTYLINE) [Concomitant]
  17. HYDROCODONE (HYDROCODONE) [Concomitant]
  18. RELPAX (ELETRIPTAN HYDROBROMIDE) [Concomitant]
  19. CYCLOBENZAPRINE (CYCLOBENZAPRINE) [Concomitant]
  20. ONDANSETRON (ONDANSETRON) [Concomitant]
  21. LOMOTIL (ATROPINE SULFATE, DIPHENOXYLATE HYDROCHLORIDE) [Concomitant]
  22. HYOSCYAMINE (HYOSCYAMINE) [Concomitant]
  23. LACTAID (TILACTASE) [Concomitant]
  24. SUCRALFATE (SUCRALFATE) [Concomitant]
  25. PRELIEF (CALCIUM GLYCEROPHOSPHATE) [Concomitant]
  26. ALLOPURINOL [Concomitant]
  27. HYDROXYUREA (HYDROXYUREA) [Concomitant]
  28. NYSTATIN (NYSTATIN) [Concomitant]
  29. ASPIRIN (ASPIRIN) [Concomitant]

REACTIONS (10)
  - Systemic inflammatory response syndrome [None]
  - Toxicity to various agents [None]
  - Tumour lysis syndrome [None]
  - Mental status changes [None]
  - Metabolic disorder [None]
  - Hypotension [None]
  - Hypocalcaemia [None]
  - Blood albumin decreased [None]
  - Confusional state [None]
  - Pain [None]
